FAERS Safety Report 18459078 (Version 1)
Quarter: 2020Q4

REPORT INFORMATION
  Report Type: Spontaneous
  Country: CA (occurrence: CA)
  Receive Date: 20201103
  Receipt Date: 20201103
  Transmission Date: 20210114
  Serious: Yes (Other)
  Sender: FDA-Public Use
  Company Number: CA-PFIZER INC-2017146326

PATIENT
  Age: 12 Year
  Sex: Female

DRUGS (5)
  1. ESTROGENS CONJUGATED [Concomitant]
     Active Substance: ESTROGENS, CONJUGATED
     Dosage: 0.25 MG, DAILY
     Route: 048
     Dates: start: 2016
  2. GENOTROPIN GOQUICK [Suspect]
     Active Substance: SOMATROPIN
     Dosage: 1.5 MG, DAILY
     Route: 058
     Dates: start: 201703, end: 2019
  3. GENOTROPIN GOQUICK [Suspect]
     Active Substance: SOMATROPIN
     Indication: TURNER^S SYNDROME
     Dosage: 1.4 MG, 1X/DAY
     Route: 058
     Dates: start: 20150608
  4. GENOTROPIN GOQUICK [Suspect]
     Active Substance: SOMATROPIN
     Dosage: 2 DF, WEEKLY (2GOQUICK, 2.25 MG)
     Route: 058
     Dates: start: 201905
  5. GENOTROPIN GOQUICK [Suspect]
     Active Substance: SOMATROPIN
     Dosage: 2.25 MG, DAILY
     Route: 058

REACTIONS (4)
  - Intercepted product prescribing error [Unknown]
  - Heart disease congenital [Unknown]
  - Product dose omission issue [Unknown]
  - Weight increased [Unknown]

NARRATIVE: CASE EVENT DATE: 20170330
